FAERS Safety Report 6749393-0 (Version None)
Quarter: 2010Q2

REPORT INFORMATION
  Report Type: 
  Country: None (occurrence: None)
  Receive Date: 20100601
  Receipt Date: 20100521
  Transmission Date: 20101027
  Serious: Yes (Hospitalization)
  Sender: FDA-Public Use
  Company Number: BR-ROCHE-704653

PATIENT
  Sex: Male
  Weight: 68 kg

DRUGS (1)
  1. ROACUTAN [Suspect]
     Indication: ACNE
     Dosage: DOSE: 20 MG/ CAPSULE+ 10 MG CAPSULE AT NIGHT
     Route: 048
     Dates: start: 20090901, end: 20091101

REACTIONS (7)
  - BACK PAIN [None]
  - CHEST PAIN [None]
  - OSTEITIS [None]
  - PAIN [None]
  - PAIN IN EXTREMITY [None]
  - PURULENT DISCHARGE [None]
  - WALKING DISABILITY [None]
